FAERS Safety Report 7772115-1 (Version None)
Quarter: 2011Q3

REPORT INFORMATION
  Report Type: 
  Country: None (occurrence: None)
  Receive Date: 20110922
  Receipt Date: 20110103
  Transmission Date: 20111222
  Serious: No
  Sender: FDA-Public Use
  Company Number: US-ASTRAZENECA-2011SE00330

PATIENT
  Age: 18566 Day
  Sex: Female
  Weight: 88 kg

DRUGS (1)
  1. SEROQUEL [Suspect]
     Indication: MENIERE'S DISEASE
     Route: 048
     Dates: start: 20050101

REACTIONS (1)
  - EXOSTOSIS [None]
